FAERS Safety Report 10707482 (Version 1)
Quarter: 2015Q1

REPORT INFORMATION
  Report Type: Spontaneous
  Country: US (occurrence: None)
  Receive Date: 20150112
  Receipt Date: 20150112
  Transmission Date: 20150721
  Serious: No
  Sender: FDA-Public Use
  Company Number: None

PATIENT
  Age: 61 Year
  Sex: Male

DRUGS (1)
  1. SYLATRON [Suspect]
     Active Substance: PEGINTERFERON ALFA-2B
     Indication: MALIGNANT MELANOMA
     Dosage: 3MCG/KG, WEEKLY, SUBCUTANEOUS
     Route: 058

REACTIONS (4)
  - Drug effect decreased [None]
  - Lung disorder [None]
  - Computerised tomogram abnormal [None]
  - Melanoma recurrent [None]

NARRATIVE: CASE EVENT DATE: 20141229
